FAERS Safety Report 11409524 (Version 1)
Quarter: 2015Q3

REPORT INFORMATION
  Report Type: Spontaneous
  Country: AR (occurrence: AR)
  Receive Date: 20150824
  Receipt Date: 20150824
  Transmission Date: 20151125
  Serious: Yes (Death)
  Sender: FDA-Public Use
  Company Number: AR-TEVA-588491ISR

PATIENT
  Age: 28 Year
  Sex: Female

DRUGS (5)
  1. METHOTREXATE [Suspect]
     Active Substance: METHOTREXATE
     Dosage: 200 MG/M2 DAILY; INFUSED OVER 12 HOURS ON DAY 1 EVERY 2 WEEKS
     Route: 041
  2. ETOPOSIDE. [Suspect]
     Active Substance: ETOPOSIDE
     Indication: GESTATIONAL TROPHOBLASTIC TUMOUR
     Dosage: 100 MG/M2 DAILY; INFUSED OVER 30 MINUTES ON DAYS 1, 2 AND 8 EVERY 2 WEEKS
     Route: 041
  3. FOLINIC ACID [Suspect]
     Active Substance: LEUCOVORIN
     Indication: GESTATIONAL TROPHOBLASTIC TUMOUR
     Dosage: 30 MILLIGRAM DAILY; FOR 4 DOSES, STARTING 24 HOURS AFTER METHOTREXATE, ON DAY 2 EVERY 2 WEEKS
     Route: 065
  4. DACTINOMYCIN [Suspect]
     Active Substance: DACTINOMYCIN
     Indication: GESTATIONAL TROPHOBLASTIC TUMOUR
     Dosage: .5 MILLIGRAM DAILY; ON DAYS 1 AND 2 EVERY 2 WEEKS
     Route: 040
  5. METHOTREXATE [Suspect]
     Active Substance: METHOTREXATE
     Indication: GESTATIONAL TROPHOBLASTIC TUMOUR
     Dosage: 100 MG/M2 DAILY; ON DAY 1 EVERY 2 WEEKS
     Route: 040

REACTIONS (1)
  - Bone marrow toxicity [Fatal]
